APPROVED DRUG PRODUCT: CARBAMAZEPINE
Active Ingredient: CARBAMAZEPINE
Strength: 100MG
Dosage Form/Route: TABLET, EXTENDED RELEASE;ORAL
Application: A213159 | Product #001
Applicant: APOTEX INC
Approved: Mar 8, 2024 | RLD: No | RS: No | Type: DISCN